FAERS Safety Report 7977901-0 (Version None)
Quarter: 2011Q4

REPORT INFORMATION
  Report Type: 
  Country: None (occurrence: None)
  Receive Date: 20111214
  Receipt Date: 20111207
  Transmission Date: 20120403
  Serious: Yes (Hospitalization)
  Sender: FDA-Public Use
  Company Number: US-BIOGENIDEC-2010BI042529

PATIENT
  Age: 36 Year
  Sex: Female

DRUGS (3)
  1. TYSABRI [Suspect]
     Route: 042
     Dates: start: 20080915, end: 20081114
  2. TYSABRI [Suspect]
     Indication: MULTIPLE SCLEROSIS
     Route: 042
     Dates: start: 20090512, end: 20100908
  3. TYSABRI [Suspect]
     Route: 042
     Dates: start: 20110923

REACTIONS (8)
  - DECUBITUS ULCER [None]
  - BRONCHITIS [None]
  - URINARY TRACT INFECTION [None]
  - MULTIPLE SCLEROSIS RELAPSE [None]
  - PNEUMONIA [None]
  - PRODUCTIVE COUGH [None]
  - ASTHENIA [None]
  - INFUSION SITE HAEMATOMA [None]
